FAERS Safety Report 8197009-1 (Version None)
Quarter: 2012Q1

REPORT INFORMATION
  Report Type: 
  Country: None (occurrence: None)
  Receive Date: 20120227
  Receipt Date: 20120102
  Transmission Date: 20120608
  Serious: Yes (Hospitalization)
  Sender: FDA-Public Use
  Company Number: 338757

PATIENT
  Sex: Female

DRUGS (12)
  1. TRAMADOL HCL [Concomitant]
  2. LOPRESSOR [Concomitant]
  3. GLIPIZIDE [Concomitant]
  4. GLUCOPHAGE [Concomitant]
  5. LOVAZA [Concomitant]
  6. LEVEMIR [Concomitant]
  7. CRESTOR [Concomitant]
  8. LUNESTA [Concomitant]
  9. VICTOZA [Suspect]
     Indication: DIABETES MELLITUS
     Dosage: 1.2 MG, QD, SUBCUTANEOUS
     Route: 058
     Dates: start: 20110101, end: 20110801
  10. NAPROXEN [Concomitant]
  11. VASOTEC /00574902/ (ENALAPRIL MALEATE) [Concomitant]
  12. GABAPENTIN [Concomitant]

REACTIONS (2)
  - WEIGHT DECREASED [None]
  - PANCREATITIS [None]
